FAERS Safety Report 23761052 (Version 1)
Quarter: 2024Q2

REPORT INFORMATION
  Report Type: Spontaneous
  Country: FR (occurrence: FR)
  Receive Date: 20240419
  Receipt Date: 20240419
  Transmission Date: 20240715
  Serious: Yes (Other)
  Sender: FDA-Public Use
  Company Number: FR-AFSSAPS-RN2024000359

PATIENT
  Age: 68 Year
  Sex: Female

DRUGS (3)
  1. CEFPODOXIME [Suspect]
     Active Substance: CEFPODOXIME
     Indication: Sinusitis
     Dosage: 200 MILLIGRAM, 2 CUPS TOTAL
     Route: 048
     Dates: start: 20210225, end: 20210225
  2. TIXOCORTOL PIVALATE [Suspect]
     Active Substance: TIXOCORTOL PIVALATE
     Indication: Sinusitis
     Dosage: 1 TO 2 SPRAYS IN EACH NOSTRIL
     Route: 045
     Dates: start: 20210225, end: 20210225
  3. Solupred [Concomitant]
     Indication: Sinusitis
     Dosage: UNK
     Route: 048
     Dates: start: 20210225

REACTIONS (1)
  - Anaphylactic reaction [Recovered/Resolved]

NARRATIVE: CASE EVENT DATE: 20210225
